FAERS Safety Report 20031494 (Version 1)
Quarter: 2021Q4

REPORT INFORMATION
  Report Type: Spontaneous
  Country: US (occurrence: US)
  Receive Date: 20211103
  Receipt Date: 20211103
  Transmission Date: 20220303
  Serious: Yes (Death, Hospitalization)
  Sender: FDA-Public Use
  Company Number: US-MYLANLABS-2021M1080638

PATIENT
  Sex: Male

DRUGS (1)
  1. METHOTREXATE [Suspect]
     Active Substance: METHOTREXATE
     Indication: Rheumatoid arthritis
     Dosage: 2.5 MILLIGRAM, BID, INITIAL CORRECT PRESCRIBED DOSE WAS 2.5MG TWICE WEEKLY
     Route: 048

REACTIONS (5)
  - Product prescribing error [Fatal]
  - Mental disorder [Fatal]
  - Mucosal inflammation [Fatal]
  - Neutropenia [Fatal]
  - Accidental overdose [Fatal]
